FAERS Safety Report 7979404-6 (Version None)
Quarter: 2011Q4

REPORT INFORMATION
  Report Type: 
  Country: None (occurrence: None)
  Receive Date: 20111129
  Receipt Date: 20110907
  Transmission Date: 20120403
  Serious: Yes (Life-Threatening)
  Sender: FDA-Public Use
  Company Number: PHEH2011US03564

PATIENT
  Age: 67 Year
  Sex: Male

DRUGS (1)
  1. AFINITOR [Suspect]
     Dosage: 5 MG, BID, ORAL
     Route: 048
     Dates: start: 20110401, end: 20110801

REACTIONS (2)
  - NEOPLASM PROGRESSION [None]
  - MALAISE [None]
